FAERS Safety Report 19584842 (Version 2)
Quarter: 2023Q2

REPORT INFORMATION
  Report Type: Report from Study
  Country: BR (occurrence: BR)
  Receive Date: 20210720
  Receipt Date: 20230526
  Transmission Date: 20230721
  Serious: Yes (Other)
  Sender: FDA-Public Use
  Company Number: BR-TAKEDA-2019TUS038656

PATIENT
  Sex: Male

DRUGS (5)
  1. VEDOLIZUMAB [Suspect]
     Active Substance: VEDOLIZUMAB
     Indication: Colitis ulcerative
     Dosage: 300 MILLIGRAM
     Route: 042
     Dates: start: 20190323
  2. VEDOLIZUMAB [Suspect]
     Active Substance: VEDOLIZUMAB
     Indication: Colitis
  3. EVEROLIMUS [Concomitant]
     Active Substance: EVEROLIMUS
     Indication: Renal transplant
     Dosage: UNK
  4. CROLIMUS [Concomitant]
     Indication: Renal transplant
     Dosage: UNK
  5. PREDNISONE [Concomitant]
     Active Substance: PREDNISONE
     Indication: Renal transplant
     Dosage: UNK

REACTIONS (8)
  - Haemorrhage [Unknown]
  - Pain [Unknown]
  - Blood creatinine abnormal [Unknown]
  - Blood cholesterol abnormal [Unknown]
  - Product availability issue [Unknown]
  - Off label use [Unknown]
  - Product dose omission issue [Unknown]
  - Abdominal pain [Unknown]
